FAERS Safety Report 24246371 (Version 2)
Quarter: 2024Q4

REPORT INFORMATION
  Report Type: Spontaneous
  Country: AR (occurrence: AR)
  Receive Date: 20240825
  Receipt Date: 20241008
  Transmission Date: 20250114
  Serious: Yes (Death)
  Sender: AMGEN
  Company Number: AR-PFIZER INC-202400240048

PATIENT
  Age: 79 Year
  Sex: Female

DRUGS (1)
  1. ENBREL [Suspect]
     Active Substance: ETANERCEPT
     Indication: Rheumatoid arthritis
     Dosage: 50 MG, 1 DOSE PER WEEK
     Route: 065
     Dates: start: 20051215

REACTIONS (1)
  - Death [Fatal]

NARRATIVE: CASE EVENT DATE: 20240623
